FAERS Safety Report 10803630 (Version 1)
Quarter: 2015Q1

REPORT INFORMATION
  Report Type: Report from Study
  Country: PL (occurrence: PL)
  Receive Date: 20150217
  Receipt Date: 20150217
  Transmission Date: 20150721
  Serious: Yes (Death, Other)
  Sender: FDA-Public Use
  Company Number: PL-GSKJP-KK201413312GSK1841157SC003

PATIENT
  Age: 72 Year
  Sex: Male
  Weight: 84 kg

DRUGS (17)
  1. ISOSORBIDE MONONITRATE. [Concomitant]
     Active Substance: ISOSORBIDE MONONITRATE
     Dates: start: 2013
  2. MAGNESIUM [Concomitant]
     Active Substance: MAGNESIUM
  3. BUDESONIDE. [Concomitant]
     Active Substance: BUDESONIDE
     Dates: start: 2013
  4. TRACUTIL [Concomitant]
  5. TRIMETAZIDINE HYDROCHLORIDE [Concomitant]
     Active Substance: TRIMETAZIDINE DIHYDROCHLORIDE
     Dates: start: 2013
  6. OFATUMUMAB [Suspect]
     Active Substance: OFATUMUMAB
     Indication: CHRONIC LYMPHOCYTIC LEUKAEMIA
     Dosage: 1000 MG, CYC
     Route: 042
     Dates: start: 20131107
  7. AMBROXOL HYDROCHLORIDE [Concomitant]
     Active Substance: AMBROXOL HYDROCHLORIDE
     Dates: start: 2013
  8. CERNEVIT [Concomitant]
     Active Substance: VITAMINS
  9. ADDIPHOS [Concomitant]
     Active Substance: POTASSIUM HYDROXIDE\POTASSIUM PHOSPHATE, DIBASIC\SODIUM PHOSPHATE, DIBASIC, ANHYDROUS
  10. SALMETEROL [Concomitant]
     Active Substance: SALMETEROL
     Dates: start: 2013
  11. BISOPROLOL [Concomitant]
     Active Substance: BISOPROLOL
     Dates: start: 2013
  12. IDELALISIB [Suspect]
     Active Substance: IDELALISIB
     Indication: CHRONIC LYMPHOCYTIC LEUKAEMIA
     Dosage: 150 MG, BID
     Route: 048
     Dates: start: 20131107
  13. FRESUBIN [Concomitant]
     Active Substance: AMINO ACIDS\DEXTROSE\ELECTROLYTES NOS\SOYBEAN OIL\VITAMINS
  14. VITAMIN C [Concomitant]
     Active Substance: ASCORBIC ACID
  15. SODIUM BICARBONATE. [Concomitant]
     Active Substance: SODIUM BICARBONATE
  16. ACICLOVIR [Concomitant]
     Active Substance: ACYCLOVIR
     Dates: start: 20131108
  17. KABIVEN [Concomitant]
     Active Substance: AMINO ACIDS\ANHYDROUS DEXTROSE\CALCIUM CHLORIDE\MAGNESIUM SULFATE HEPTAHYDRATE\POTASSIUM CHLORIDE\SODIUM ACETATE\SODIUM GLYCEROPHOSPHATE ANHYDROUS\SOYBEAN OIL

REACTIONS (1)
  - Pneumonia [Fatal]

NARRATIVE: CASE EVENT DATE: 20140601
